FAERS Safety Report 14851841 (Version 2)
Quarter: 2018Q2

REPORT INFORMATION
  Report Type: Spontaneous
  Country: US (occurrence: US)
  Receive Date: 20180507
  Receipt Date: 20180525
  Transmission Date: 20180711
  Serious: Yes (Death, Other)
  Sender: FDA-Public Use
  Company Number: US-BIOGEN-2018BI00567962

PATIENT
  Age: 9 Day
  Sex: Male

DRUGS (1)
  1. SPINRAZA [Suspect]
     Active Substance: NUSINERSEN
     Indication: SPINAL MUSCULAR ATROPHY
     Route: 037
     Dates: start: 20180410, end: 20180425

REACTIONS (3)
  - Chylothorax [Fatal]
  - Convulsion neonatal [Unknown]
  - Oedema [Fatal]

NARRATIVE: CASE EVENT DATE: 201804
